FAERS Safety Report 9052323 (Version 1)
Quarter: 2013Q1

REPORT INFORMATION
  Report Type: Spontaneous
  Country: US (occurrence: US)
  Receive Date: 20130206
  Receipt Date: 20130206
  Transmission Date: 20140127
  Serious: Yes (Other)
  Sender: FDA-Public Use
  Company Number: US-TEVA-384628USA

PATIENT
  Sex: 0

DRUGS (1)
  1. CLARAVIS [Suspect]

REACTIONS (2)
  - Joint injury [Unknown]
  - Hip surgery [Unknown]
